FAERS Safety Report 8785040 (Version 1)
Quarter: 2012Q4

REPORT INFORMATION
  Report Type: 
  Country: US (occurrence: US)
  Receive Date: 20120914
  Receipt Date: 20120914
  Transmission Date: 20130627
  Serious: No
  Sender: FDA-Public Use
  Company Number: US-PFIZER INC-2012227386

PATIENT
  Age: 39 Year
  Sex: Male
  Weight: 172 kg

DRUGS (6)
  1. CHANTIX [Suspect]
     Indication: SMOKING CESSATION THERAPY
     Dosage: 0.5 mg, 1x/day
     Route: 048
     Dates: start: 200711
  2. CHANTIX [Suspect]
     Dosage: UNK
     Route: 048
     Dates: end: 200801
  3. ARTHROTEC [Concomitant]
     Indication: ARTHRITIS
     Dosage: UNK
  4. LYRICA [Concomitant]
     Indication: ARTHRITIS
     Dosage: UNK
  5. LORTAB [Concomitant]
     Indication: ARTHRITIS
     Dosage: UNK
  6. SOMA [Concomitant]
     Indication: ARTHRITIS
     Dosage: UNK

REACTIONS (1)
  - Abnormal dreams [Recovered/Resolved]
